FAERS Safety Report 16085739 (Version 1)
Quarter: 2019Q1

REPORT INFORMATION
  Report Type: Spontaneous
  Country: ZA (occurrence: ZA)
  Receive Date: 20190318
  Receipt Date: 20190318
  Transmission Date: 20190418
  Serious: Yes (Other)
  Sender: FDA-Public Use
  Company Number: IND-ZA-009507513-1903ZAF005155

PATIENT
  Sex: Female

DRUGS (1)
  1. ARCOXIA [Suspect]
     Active Substance: ETORICOXIB
     Indication: RHEUMATOID ARTHRITIS
     Dosage: 1 DOSAGE FORM, BID
     Route: 048

REACTIONS (3)
  - Atrial fibrillation [Recovered/Resolved]
  - Inappropriate schedule of product administration [Unknown]
  - Product prescribing error [Unknown]
